FAERS Safety Report 8920851 (Version 1)
Quarter: 2012Q4

REPORT INFORMATION
  Report Type: 
  Country: US (occurrence: US)
  Receive Date: 20121122
  Receipt Date: 20121122
  Transmission Date: 20130627
  Serious: No
  Sender: FDA-Public Use
  Company Number: US-PFIZER INC-2012269869

PATIENT
  Age: 65 Year
  Sex: Male
  Weight: 92.06 kg

DRUGS (1)
  1. SUTENT [Suspect]
     Indication: METASTATIC RENAL CELL CARCINOMA
     Dosage: 50 mg, cyclic
     Dates: start: 20100925

REACTIONS (3)
  - Stomatitis [Unknown]
  - Fatigue [Unknown]
  - Gastrooesophageal reflux disease [Unknown]
